FAERS Safety Report 6441188-0 (Version None)
Quarter: 2009Q4

REPORT INFORMATION
  Report Type: 
  Country: None (occurrence: None)
  Receive Date: 20091116
  Receipt Date: 20091105
  Transmission Date: 20100525
  Serious: Yes (Hospitalization)
  Sender: FDA-Public Use
  Company Number: GB-ELI_LILLY_AND_COMPANY-GB200911001577

PATIENT
  Age: 66 Year
  Sex: Male
  Weight: 83.4 kg

DRUGS (6)
  1. BYETTA [Suspect]
     Dosage: 5 UG, UNKNOWN
     Route: 058
     Dates: start: 20090629
  2. ENALAPRIL [Concomitant]
     Indication: HYPERTENSION
     Dosage: 5 MG, UNKNOWN
     Route: 048
     Dates: start: 20040514
  3. GLICLAZIDE [Concomitant]
     Indication: DIABETES MELLITUS
     Dosage: 50 MG, 2/D
     Route: 048
     Dates: start: 20080121
  4. METFORMIN HCL [Concomitant]
     Indication: DIABETES MELLITUS
     Dosage: 500 MG, 3/D
     Route: 048
     Dates: start: 20070911
  5. SILDENAFIL [Concomitant]
     Indication: ERECTILE DYSFUNCTION
     Dosage: 50 MG, AS NEEDED
     Route: 048
     Dates: start: 20060223
  6. SIMAVASTATIN [Concomitant]
     Indication: DIABETES MELLITUS
     Dosage: 10 MG, DAILY (1/D)
     Route: 065
     Dates: start: 20060223

REACTIONS (3)
  - ACUTE CORONARY SYNDROME [None]
  - PAIN IN EXTREMITY [None]
  - PAIN IN JAW [None]
